FAERS Safety Report 6872306-8 (Version None)
Quarter: 2010Q3

REPORT INFORMATION
  Report Type: 
  Country: None (occurrence: None)
  Receive Date: 20100723
  Receipt Date: 20080915
  Transmission Date: 20110219
  Serious: No
  Sender: FDA-Public Use
  Company Number: US-PFIZER INC-2008079508

PATIENT
  Sex: Female
  Weight: 70.5 kg

DRUGS (3)
  1. CHANTIX [Suspect]
     Indication: SMOKING CESSATION THERAPY
     Dates: start: 20080905, end: 20080913
  2. LITHIUM [Concomitant]
  3. ATIVAN [Concomitant]

REACTIONS (5)
  - ASTHENIA [None]
  - CRYING [None]
  - FATIGUE [None]
  - NAUSEA [None]
  - VOMITING [None]
